FAERS Safety Report 5117008-3 (Version None)
Quarter: 2006Q3

REPORT INFORMATION
  Report Type: 
  Country: None (occurrence: None)
  Receive Date: 20060921
  Receipt Date: 20060914
  Transmission Date: 20061208
  Serious: Yes (Other)
  Sender: FDA-Public Use
  Company Number: ATWYE935715SEP06

PATIENT
  Sex: Male

DRUGS (1)
  1. REFACTO               (MOROCTOCOG ALFA) [Suspect]
     Indication: FACTOR VIII DEFICIENCY
     Dosage: INTRAVENOUS
     Route: 042

REACTIONS (1)
  - NEUTRALISING ANTIBODIES POSITIVE [None]
